FAERS Safety Report 9718293 (Version 1)
Quarter: 2013Q4

REPORT INFORMATION
  Report Type: Spontaneous
  Country: US (occurrence: US)
  Receive Date: 20131125
  Receipt Date: 20131125
  Transmission Date: 20140711
  Serious: No
  Sender: FDA-Public Use
  Company Number: US-VIVUS-2013V1000223

PATIENT
  Age: 39 Year
  Sex: Female
  Weight: 102.15 kg

DRUGS (2)
  1. QSYMIA 7.5MG/46MG [Suspect]
     Indication: OBESITY
     Route: 048
     Dates: start: 20130308
  2. POTASSIUM [Concomitant]
     Indication: DRUG THERAPY
     Route: 048
     Dates: start: 20130308

REACTIONS (2)
  - Headache [Not Recovered/Not Resolved]
  - Paraesthesia [Recovering/Resolving]
